FAERS Safety Report 23167403 (Version 1)
Quarter: 2023Q4

REPORT INFORMATION
  Report Type: Report from Study
  Country: HU (occurrence: HU)
  Receive Date: 20231109
  Receipt Date: 20231109
  Transmission Date: 20240110
  Serious: Yes (Hospitalization)
  Sender: FDA-Public Use
  Company Number: HU-Eisai-EC-2023-152281

PATIENT
  Age: 63 Year
  Sex: Female
  Weight: 79 kg

DRUGS (18)
  1. LENVATINIB [Suspect]
     Active Substance: LENVATINIB
     Indication: Clear cell renal cell carcinoma
     Dosage: STARTING AT 20MG, FLUCTUATED DOSAGE
     Route: 048
     Dates: start: 20230502, end: 20231014
  2. QUAVONLIMAB [Suspect]
     Active Substance: QUAVONLIMAB
     Indication: Clear cell renal cell carcinoma
     Dosage: QUAVONLIMAB 25 MG (+) PEMBROLIZUMAB 400 MG (MK-1308A)
     Route: 042
     Dates: start: 20230502, end: 20230904
  3. ATORVASTATIN [Concomitant]
     Active Substance: ATORVASTATIN
     Dates: start: 201711
  4. RILMENIDINE [Concomitant]
     Active Substance: RILMENIDINE
     Dates: start: 201711
  5. INDAPAMIDE [Concomitant]
     Active Substance: INDAPAMIDE
     Dates: start: 202111
  6. FERROUS SULFATE [Concomitant]
     Active Substance: FERROUS SULFATE
     Dates: start: 202211
  7. BISOPROLOL [Concomitant]
     Active Substance: BISOPROLOL\BISOPROLOL FUMARATE
     Dates: start: 20230222
  8. EDOXABAN [Concomitant]
     Active Substance: EDOXABAN
     Dates: start: 20230411
  9. ALPRAZOLAM [Concomitant]
     Active Substance: ALPRAZOLAM
     Dates: start: 20230508
  10. NIFEDIPINE [Concomitant]
     Active Substance: NIFEDIPINE
     Dates: start: 20230516
  11. PANTOPRAZOLE [Concomitant]
     Active Substance: PANTOPRAZOLE
     Dates: start: 20230517
  12. AMLODIPINE [Concomitant]
     Active Substance: AMLODIPINE BESYLATE
     Dates: start: 20230520
  13. MOMETASONE FUROATE [Concomitant]
     Active Substance: MOMETASONE FUROATE
     Dates: start: 20230802
  14. RUPATADINE [Concomitant]
     Active Substance: RUPATADINE
     Dates: start: 20230925
  15. LEVOTHYROXINE SODIUM [Concomitant]
     Active Substance: LEVOTHYROXINE SODIUM
     Dates: start: 20231001, end: 20231017
  16. PAROXETINE [Concomitant]
     Active Substance: PAROXETINE
     Dates: start: 20231006, end: 20231009
  17. DULOXETINE HYDROCHLORIDE [Concomitant]
     Active Substance: DULOXETINE HYDROCHLORIDE
     Dates: start: 20231009
  18. PEMBROLIZUMAB [Suspect]
     Active Substance: PEMBROLIZUMAB

REACTIONS (1)
  - Hyponatraemia [Recovered/Resolved]

NARRATIVE: CASE EVENT DATE: 20231016
